FAERS Safety Report 22112160 (Version 1)
Quarter: 2023Q1

REPORT INFORMATION
  Report Type: Spontaneous
  Country: US (occurrence: US)
  Receive Date: 20230318
  Receipt Date: 20230318
  Transmission Date: 20230418
  Serious: No
  Sender: FDA-Public Use
  Company Number: US-BoehringerIngelheim-2023-BI-225928

PATIENT
  Age: 73 Year
  Sex: Female

DRUGS (1)
  1. EMPAGLIFLOZIN\LINAGLIPTIN\METFORMIN HYDROCHLORIDE [Suspect]
     Active Substance: EMPAGLIFLOZIN\LINAGLIPTIN\METFORMIN HYDROCHLORIDE
     Indication: Product used for unknown indication
     Dosage: DOSE: 5-2.5-1000
     Route: 048

REACTIONS (1)
  - Glycosylated haemoglobin increased [Not Recovered/Not Resolved]
